FAERS Safety Report 8893220 (Version 2)
Quarter: 2012Q4

REPORT INFORMATION
  Report Type: 
  Country: FR (occurrence: FR)
  Receive Date: 20121108
  Receipt Date: 20121204
  Transmission Date: 20130627
  Serious: Yes (Hospitalization)
  Sender: FDA-Public Use
  Company Number: PHHY2012FR097530

PATIENT
  Age: 40 Year
  Sex: Female

DRUGS (1)
  1. EXTAVIA [Suspect]
     Indication: MULTIPLE SCLEROSIS
     Dosage: 250 ug, QOD
     Route: 058
     Dates: start: 20121011, end: 20121020

REACTIONS (3)
  - Basedow^s disease [Unknown]
  - Tachycardia [Unknown]
  - Hyperthyroidism [Unknown]
